FAERS Safety Report 22876811 (Version 2)
Quarter: 2025Q2

REPORT INFORMATION
  Report Type: Spontaneous
  Country: IT (occurrence: IT)
  Receive Date: 20230829
  Receipt Date: 20250528
  Transmission Date: 20250716
  Serious: Yes (Hospitalization, Other)
  Sender: AUROBINDO
  Company Number: IT-STADA-284437

PATIENT
  Age: 6 Day
  Sex: Male
  Weight: 3.4 kg

DRUGS (2)
  1. OLMESARTAN [Suspect]
     Active Substance: OLMESARTAN
     Indication: Hypertension
     Route: 065
  2. OLMESARTAN [Suspect]
     Active Substance: OLMESARTAN
     Indication: Exposure via breast milk

REACTIONS (2)
  - Hypertransaminasaemia [Recovered/Resolved]
  - Exposure via breast milk [Recovered/Resolved]
